FAERS Safety Report 24605009 (Version 1)
Quarter: 2024Q4

REPORT INFORMATION
  Report Type: Spontaneous
  Country: FI (occurrence: FI)
  Receive Date: 20241111
  Receipt Date: 20241111
  Transmission Date: 20250115
  Serious: Yes (Hospitalization, Other)
  Sender: ABBVIE
  Company Number: FI-ABBVIE-5989806

PATIENT
  Sex: Female

DRUGS (1)
  1. UPADACITINIB [Suspect]
     Active Substance: UPADACITINIB
     Indication: Product used for unknown indication
     Dosage: START DATE TEXT: NOV-2023 OR DEC-2023
     Route: 048
     Dates: start: 202311, end: 202402

REACTIONS (9)
  - Pneumonia [Unknown]
  - Abdominal pain [Recovering/Resolving]
  - Pneumonia staphylococcal [Unknown]
  - Respiratory syncytial virus test positive [Unknown]
  - Abdominal adhesions [Recovered/Resolved]
  - Respiratory moniliasis [Unknown]
  - Intestinal anastomosis [Unknown]
  - Small intestinal stenosis [Unknown]
  - Diarrhoea [Recovering/Resolving]

NARRATIVE: CASE EVENT DATE: 20240201
